FAERS Safety Report 11993541 (Version 1)
Quarter: 2016Q1

REPORT INFORMATION
  Report Type: Spontaneous
  Country: US (occurrence: None)
  Receive Date: 20160202
  Receipt Date: 20160202
  Transmission Date: 20160526
  Serious: No
  Sender: FDA-Public Use
  Company Number: None

PATIENT
  Age: 43 Year
  Sex: Female

DRUGS (1)
  1. TYSABRI [Suspect]
     Active Substance: NATALIZUMAB
     Indication: MULTIPLE SCLEROSIS
     Dosage: DOSE FORM: INFUSION  FREQUENCY: Q28DAYS
     Route: 042
     Dates: start: 20151007

REACTIONS (2)
  - Immune system disorder [None]
  - Oral herpes [None]

NARRATIVE: CASE EVENT DATE: 20160127
